FAERS Safety Report 4487635-5 (Version None)
Quarter: 2004Q4

REPORT INFORMATION
  Report Type: 
  Country: None (occurrence: None)
  Receive Date: 20041027
  Receipt Date: 20041027
  Transmission Date: 20050328
  Serious: No
  Sender: FDA-Public Use
  Company Number: None

PATIENT
  Sex: Female

DRUGS (8)
  1. OXYCODONE AND ACETAMINOPHEN [Suspect]
     Indication: ARTHROPATHY
     Dosage: 7.5 / 325 QID
  2. OXYCODONE AND ACETAMINOPHEN [Suspect]
     Indication: FIBROMYALGIA
     Dosage: 7.5 / 325 QID
  3. OXYCODONE AND ACETAMINOPHEN [Suspect]
     Indication: INTERVERTEBRAL DISC DEGENERATION
     Dosage: 7.5 / 325 QID
  4. TOPAMAX [Concomitant]
  5. ELAVIL [Concomitant]
  6. NEURONTIN [Concomitant]
  7. SEROQUEL [Concomitant]
  8. VALIUM [Concomitant]

REACTIONS (2)
  - DRUG EFFECT DECREASED [None]
  - PHARMACEUTICAL PRODUCT COMPLAINT [None]
